FAERS Safety Report 5193419-5 (Version None)
Quarter: 2006Q4

REPORT INFORMATION
  Report Type: 
  Country: None (occurrence: None)
  Receive Date: 20061228
  Receipt Date: 20060620
  Transmission Date: 20070319
  Serious: No
  Sender: FDA-Public Use
  Company Number: US-GLAXOSMITHKLINE-A0609707A

PATIENT
  Age: 57 Year
  Sex: Male

DRUGS (3)
  1. TRIZIVIR [Suspect]
     Indication: HIV INFECTION
     Dosage: 1TAB TWICE PER DAY
     Route: 048
     Dates: start: 20000101
  2. AGGRENOX [Concomitant]
  3. TERAZOSIN HCL [Concomitant]

REACTIONS (3)
  - CD4 LYMPHOCYTES DECREASED [None]
  - ELECTROCARDIOGRAM CHANGE [None]
  - VIRAL LOAD INCREASED [None]
